FAERS Safety Report 18604847 (Version 1)
Quarter: 2020Q4

REPORT INFORMATION
  Report Type: Report from Study
  Country: US (occurrence: US)
  Receive Date: 20201211
  Receipt Date: 20201211
  Transmission Date: 20210114
  Serious: Yes (Hospitalization)
  Sender: FDA-Public Use
  Company Number: US-TAKEDA-2020TUS018703

PATIENT
  Sex: Female

DRUGS (1)
  1. IXAZOMIB [Suspect]
     Active Substance: IXAZOMIB
     Indication: PLASMA CELL MYELOMA
     Dosage: 4 MILLIGRAM
     Route: 065
     Dates: start: 201909, end: 202002

REACTIONS (10)
  - Urinary tract infection [Unknown]
  - Fall [Unknown]
  - Hypoaesthesia [Unknown]
  - Skin discolouration [Unknown]
  - Blood count abnormal [Unknown]
  - Asthenia [Unknown]
  - Swelling [Unknown]
  - Somnolence [Unknown]
  - Product dose omission issue [Unknown]
  - Blood urine present [Unknown]
